FAERS Safety Report 7357114-6 (Version None)
Quarter: 2011Q1

REPORT INFORMATION
  Report Type: 
  Country: None (occurrence: None)
  Receive Date: 20110308
  Receipt Date: 20110222
  Transmission Date: 20110831
  Serious: Yes (Disabling, Other)
  Sender: FDA-Public Use
  Company Number: 2010003044

PATIENT
  Age: 71 Year
  Sex: Female
  Weight: 53.4 kg

DRUGS (1)
  1. ERLOTINIB (ERLOTINIB) (TABLET) (ERLOTINIB) [Suspect]
     Indication: LUNG SQUAMOUS CELL CARCINOMA STAGE UNSPECIFIED
     Dosage: 150 MG, QD, ORAL
     Route: 048
     Dates: start: 20090523, end: 20090706

REACTIONS (5)
  - NON-SMALL CELL LUNG CANCER STAGE IV [None]
  - BRONCHIECTASIS [None]
  - INTERSTITIAL LUNG DISEASE [None]
  - HAEMOPTYSIS [None]
  - NEOPLASM MALIGNANT [None]
